FAERS Safety Report 7129442-0 (Version None)
Quarter: 2010Q4

REPORT INFORMATION
  Report Type: 
  Country: None (occurrence: None)
  Receive Date: 20101130
  Receipt Date: 20101122
  Transmission Date: 20110411
  Serious: Yes (Death, Hospitalization)
  Sender: FDA-Public Use
  Company Number: GB-CELGENEUS-167-C5013-10110640

PATIENT
  Sex: Male
  Weight: 76 kg

DRUGS (18)
  1. CC-5013 [Suspect]
     Indication: MANTLE CELL LYMPHOMA
     Route: 048
     Dates: start: 20100917
  2. CC-5013 [Suspect]
     Route: 048
     Dates: start: 20101015, end: 20101101
  3. VENTOLIN [Concomitant]
     Route: 055
     Dates: start: 20100803
  4. OMEPRAZOLE [Concomitant]
     Indication: GASTRITIS PROPHYLAXIS
     Route: 048
     Dates: start: 20011220
  5. AMITRIPTYLINE HCL [Concomitant]
     Route: 048
     Dates: start: 20080418
  6. QUININE SULFATE [Concomitant]
     Route: 048
     Dates: start: 20060320
  7. TAMSULOSIN [Concomitant]
     Indication: BENIGN PROSTATIC HYPERPLASIA
     Route: 048
     Dates: start: 20091112
  8. IODINE [Concomitant]
     Indication: OSTEOARTHRITIS
     Route: 048
     Dates: start: 20090512
  9. CANDESARTAN CILEXETIL [Concomitant]
     Route: 048
     Dates: start: 20090126
  10. ASPIRIN [Concomitant]
     Indication: THROMBOSIS PROPHYLAXIS
     Route: 048
     Dates: start: 20100917
  11. DIFFLAM [Concomitant]
     Route: 048
     Dates: start: 20000101
  12. SYMBICORT [Concomitant]
     Route: 055
     Dates: start: 20091014
  13. SALBUTAMOL [Concomitant]
     Route: 055
     Dates: start: 20001031
  14. TRAMADOL HCL [Concomitant]
     Indication: PAIN
     Route: 048
     Dates: start: 20080623
  15. FRUSEMIDE [Concomitant]
     Route: 048
     Dates: start: 20101001
  16. ETODOLAC [Concomitant]
     Route: 048
  17. MAGNESIUM HYDROXIDE [Concomitant]
     Indication: CONSTIPATION
     Route: 048
     Dates: start: 20100920
  18. ALLOPURINOL [Concomitant]
     Route: 048

REACTIONS (2)
  - ARTHRITIS [None]
  - DEATH [None]
